FAERS Safety Report 12913639 (Version 1)
Quarter: 2016Q4

REPORT INFORMATION
  Report Type: Spontaneous
  Country: US (occurrence: US)
  Receive Date: 20161104
  Receipt Date: 20161104
  Transmission Date: 20170207
  Serious: Yes (Other)
  Sender: FDA-Public Use
  Company Number: US-BRISTOL-MYERS SQUIBB COMPANY-BMS-2016-090937

PATIENT
  Sex: Female
  Weight: 65.76 kg

DRUGS (2)
  1. ELIQUIS [Suspect]
     Active Substance: APIXABAN
     Indication: CEREBROVASCULAR ACCIDENT PROPHYLAXIS
     Dosage: 5 MG, BID
     Route: 048
  2. XARELTO [Suspect]
     Active Substance: RIVAROXABAN
     Indication: ATRIAL FIBRILLATION
     Route: 065

REACTIONS (11)
  - Gait disturbance [Unknown]
  - Blood urine present [Unknown]
  - Blood iron decreased [Unknown]
  - Haemoglobin decreased [Unknown]
  - Haematochezia [Unknown]
  - Dyspnoea [Unknown]
  - Pruritus [Unknown]
  - Decreased appetite [Unknown]
  - Loss of consciousness [Unknown]
  - Urticaria [Unknown]
  - Weight decreased [Unknown]
